FAERS Safety Report 10487511 (Version 1)
Quarter: 2014Q4

REPORT INFORMATION
  Report Type: Spontaneous
  Country: US (occurrence: US)
  Receive Date: 20141001
  Receipt Date: 20141001
  Transmission Date: 20150528
  Serious: No
  Sender: FDA-Public Use
  Company Number: US-009507513-1409USA011676

PATIENT
  Sex: Female

DRUGS (1)
  1. MEVACOR [Suspect]
     Active Substance: LOVASTATIN
     Route: 048

REACTIONS (1)
  - Blood cholesterol increased [Unknown]
